FAERS Safety Report 15613597 (Version 1)
Quarter: 2018Q4

REPORT INFORMATION
  Report Type: Spontaneous
  Country: US (occurrence: US)
  Receive Date: 20181113
  Receipt Date: 20181113
  Transmission Date: 20190205
  Serious: Yes (Other)
  Sender: FDA-Public Use
  Company Number: US-GILEAD-2018-0373419

PATIENT
  Age: 61 Year
  Sex: Female
  Weight: 63.3 kg

DRUGS (1)
  1. YESCARTA [Suspect]
     Active Substance: AXICABTAGENE CILOLEUCEL
     Indication: DIFFUSE LARGE B-CELL LYMPHOMA
     Dosage: UNK, ONCE
     Route: 042
     Dates: start: 20180925, end: 20180925

REACTIONS (15)
  - Encephalopathy [Unknown]
  - Confusional state [Unknown]
  - Tremor [Unknown]
  - Agitation [Unknown]
  - Pyrexia [Unknown]
  - Muscular weakness [Unknown]
  - Disorientation [Unknown]
  - Memory impairment [Unknown]
  - Somnolence [Unknown]
  - Cytokine release syndrome [Unknown]
  - Hypotension [Unknown]
  - Transaminases increased [Unknown]
  - Neuropathy peripheral [Unknown]
  - Tachycardia [Unknown]
  - Hypoxia [Unknown]

NARRATIVE: CASE EVENT DATE: 20180927
